FAERS Safety Report 10739436 (Version 1)
Quarter: 2015Q1

REPORT INFORMATION
  Report Type: Report from Study
  Country: IN (occurrence: IN)
  Receive Date: 20150126
  Receipt Date: 20150126
  Transmission Date: 20150721
  Serious: Yes (Death)
  Sender: FDA-Public Use
  Company Number: IN-GLAXOSMITHKLINE INC.-IN2015GSK009102

PATIENT
  Age: 56 Year
  Sex: Female

DRUGS (1)
  1. TYKERB [Suspect]
     Active Substance: LAPATINIB DITOSYLATE
     Indication: BREAST CANCER METASTATIC
     Dosage: 250 MG, UNK
     Dates: start: 201501

REACTIONS (1)
  - Pyrexia [Fatal]
